FAERS Safety Report 8411688-2 (Version None)
Quarter: 2012Q2

REPORT INFORMATION
  Report Type: 
  Country: None (occurrence: None)
  Receive Date: 20120605
  Receipt Date: 20120528
  Transmission Date: 20120825
  Serious: Yes (Hospitalization)
  Sender: FDA-Public Use
  Company Number: JP-PFIZER INC-2012077589

PATIENT
  Age: 91 Year
  Sex: Female
  Weight: 29 kg

DRUGS (9)
  1. LYRICA [Suspect]
     Indication: NEURALGIA
  2. RINGEREAZE [Suspect]
     Indication: NEURALGIA
     Dosage: UNK, 2X/DAY
     Route: 048
     Dates: start: 20120126
  3. CANDESARTAN CILEXETIL [Concomitant]
     Indication: HYPERTENSION
     Dosage: 4 MG, 2X/DAY
     Route: 048
     Dates: start: 20100630
  4. ASPIRIN [Concomitant]
     Indication: CEREBRAL INFARCTION
     Dosage: 100 MG, 1X/DAY
     Route: 048
     Dates: start: 20031104
  5. BENFOTIAMINE/COBAMAMIDE/PYRIDOXINE HYDROCHLORIDE [Concomitant]
     Dosage: UNK
     Route: 048
     Dates: start: 20031104
  6. REBAMIPIDE [Concomitant]
     Indication: GASTRITIS PROPHYLAXIS
     Dosage: UNK
     Route: 048
     Dates: start: 20120126
  7. NEUROTROPIN [Concomitant]
     Indication: NEURALGIA
     Dosage: UNK, 1X/DAY
     Route: 041
     Dates: start: 20120126, end: 20120202
  8. LYRICA [Suspect]
     Indication: BACK PAIN
     Dosage: 75 MG, 2X/DAY
     Route: 048
     Dates: start: 20120126, end: 20120207
  9. PROPIVERINE HYDROCHLORIDE [Concomitant]
     Indication: POLLAKIURIA
     Dosage: 10 MG, 2X/DAY
     Route: 048
     Dates: start: 20100630

REACTIONS (3)
  - CARDIAC FAILURE [None]
  - PLEURAL EFFUSION [None]
  - DYSPNOEA [None]
